FAERS Safety Report 15195136 (Version 2)
Quarter: 2018Q4

REPORT INFORMATION
  Report Type: Spontaneous
  Country: JP (occurrence: JP)
  Receive Date: 20180725
  Receipt Date: 20181231
  Transmission Date: 20190204
  Serious: Yes (Death, Other)
  Sender: FDA-Public Use
  Company Number: JP-PFIZER INC-2018292458

PATIENT
  Age: 62 Year

DRUGS (7)
  1. GLIMICRON [Suspect]
     Active Substance: GLICLAZIDE
     Indication: DIABETES MELLITUS
     Dosage: UNK
     Dates: end: 201805
  2. ARIMIDEX [Concomitant]
     Active Substance: ANASTROZOLE
     Indication: BREAST CANCER
     Dosage: UNK
     Dates: start: 20170531, end: 20171225
  3. IBRANCE [Suspect]
     Active Substance: PALBOCICLIB
     Dosage: 100 MG, CYCLIC (1X/DAY, 2 CYCLE)
     Route: 048
     Dates: start: 20180216, end: 20181002
  4. IBRANCE [Suspect]
     Active Substance: PALBOCICLIB
     Indication: BREAST CANCER
     Dosage: 125 MG, CYCLIC (1X/DAY, 1 CYCLE)
     Route: 048
     Dates: start: 20180116, end: 20180130
  5. FEMARA [Suspect]
     Active Substance: LETROZOLE
     Indication: BREAST CANCER
     Dosage: UNK
     Dates: start: 20171226, end: 20181009
  6. METGLUCO [Suspect]
     Active Substance: METFORMIN HYDROCHLORIDE
     Indication: DIABETES MELLITUS
     Dosage: 250 MG, UNK
     Dates: end: 201805
  7. RANMARK [Suspect]
     Active Substance: DENOSUMAB
     Indication: METASTASES TO BONE
     Dosage: UNK
     Dates: start: 20170626, end: 20180918

REACTIONS (2)
  - Neoplasm progression [Fatal]
  - Renal impairment [Recovered/Resolved]

NARRATIVE: CASE EVENT DATE: 20180423
